FAERS Safety Report 18577911 (Version 1)
Quarter: 2020Q4

REPORT INFORMATION
  Report Type: Other
  Country: JP (occurrence: JP)
  Receive Date: 20201204
  Receipt Date: 20201204
  Transmission Date: 20210114
  Serious: Yes (Other)
  Sender: FDA-Public Use
  Company Number: JP-ROCHE-2723757

PATIENT
  Age: 34 Year
  Sex: Female

DRUGS (3)
  1. GEMCITABINE HYDROCHLORIDE. [Suspect]
     Active Substance: GEMCITABINE HYDROCHLORIDE
     Indication: PRODUCT USED FOR UNKNOWN INDICATION
     Dosage: 1 AND 8 EVERY 3 WEEK
     Route: 041
  2. MITOTANE [Concomitant]
     Active Substance: MITOTANE
     Indication: ADRENOCORTICAL CARCINOMA
     Dosage: ON DAYS 1 AND 8 AND UNCERTAIN DOSAGE
     Route: 065
  3. XELODA [Suspect]
     Active Substance: CAPECITABINE
     Indication: ADRENOCORTICAL CARCINOMA
     Route: 048

REACTIONS (6)
  - Intentional product use issue [Unknown]
  - Neutropenia [Recovered/Resolved]
  - Asthenia [Unknown]
  - Off label use [Unknown]
  - Hyponatraemia [Unknown]
  - Interstitial lung disease [Recovering/Resolving]
